FAERS Safety Report 7968853-8 (Version None)
Quarter: 2011Q4

REPORT INFORMATION
  Report Type: 
  Country: None (occurrence: None)
  Receive Date: 20111209
  Receipt Date: 20111205
  Transmission Date: 20120403
  Serious: Yes (Hospitalization)
  Sender: FDA-Public Use
  Company Number: GXKR2011DE003533

PATIENT
  Sex: Female

DRUGS (3)
  1. LYRICA [Suspect]
     Indication: DEPRESSION
     Route: 048
     Dates: start: 20110202, end: 20110318
  2. SERTRALINE HYDROCHLORIDE [Suspect]
     Indication: DEPRESSION
     Dosage: UNK
     Route: 048
     Dates: start: 20110303, end: 20110317
  3. AMITRIPTYLINE HCL [Suspect]
     Indication: DEPRESSION
     Route: 048
     Dates: start: 20110207, end: 20110317

REACTIONS (6)
  - PAIN [None]
  - PRURITUS [None]
  - ORAL CANDIDIASIS [None]
  - SKIN REACTION [None]
  - STEVENS-JOHNSON SYNDROME [None]
  - SKIN EXFOLIATION [None]
